FAERS Safety Report 10089646 (Version 2)
Quarter: 2014Q3

REPORT INFORMATION
  Report Type: Spontaneous
  Country: AU (occurrence: None)
  Receive Date: 20140417
  Receipt Date: 20140722
  Transmission Date: 20150326
  Serious: Yes (Life-Threatening, Hospitalization, Other)
  Sender: FDA-Public Use
  Company Number: AUR-APL-2014-04534

PATIENT
  Age: 34 Year
  Sex: Female

DRUGS (3)
  1. AURO-QUETIPAINE (QUETIAPINE) FILM-COATED TABLET, 25MG? [Suspect]
     Active Substance: QUETIAPINE
     Indication: PRODUCT USED FOR UNKNOWN INDICATION
     Dosage: 1 D
  2. PRISTIQ (DESVENLAFAXINE SUCCINATE) [Suspect]
     Active Substance: DESVENLAFAXINE SUCCINATE
     Indication: PRODUCT USED FOR UNKNOWN INDICATION
  3. ELEVIT RDI (MINERALS NOS, VITAMINS NOS) [Concomitant]

REACTIONS (5)
  - Postpartum haemorrhage [None]
  - Abnormal labour [None]
  - Exposure during pregnancy [None]
  - Prolonged labour [None]
  - Foetal distress syndrome [None]

NARRATIVE: CASE EVENT DATE: 20120312
